FAERS Safety Report 4798643-9 (Version None)
Quarter: 2005Q4

REPORT INFORMATION
  Report Type: 
  Country: None (occurrence: None)
  Receive Date: 20051014
  Receipt Date: 20051004
  Transmission Date: 20060501
  Serious: Yes (Other)
  Sender: FDA-Public Use
  Company Number: US-MERCK-0510USA02520

PATIENT
  Age: 52 Year
  Sex: Male
  Weight: 130 kg

DRUGS (7)
  1. VIOXX [Suspect]
     Indication: ARTHRITIS
     Route: 048
     Dates: start: 20000306, end: 20020616
  2. COZAAR [Concomitant]
     Route: 048
  3. HYZAAR [Concomitant]
     Route: 048
  4. LONOX [Concomitant]
     Route: 048
  5. ALBUTEROL [Concomitant]
     Route: 048
  6. NORVASC [Concomitant]
     Route: 048
  7. HYDROCODONE BITARTRATE [Concomitant]
     Route: 048

REACTIONS (2)
  - CARDIOVASCULAR DISORDER [None]
  - MYOCARDIAL INFARCTION [None]
